FAERS Safety Report 18552256 (Version 2)
Quarter: 2020Q4

REPORT INFORMATION
  Report Type: Spontaneous
  Country: US (occurrence: US)
  Receive Date: 20201127
  Receipt Date: 20201223
  Transmission Date: 20210114
  Serious: Yes (Hospitalization, Other)
  Sender: FDA-Public Use
  Company Number: US-TEVA-2020-US-1852938

PATIENT
  Age: 64 Year
  Sex: Male

DRUGS (13)
  1. VALSARTAN/HYDROCHLOROTHIAZIDE TEVA [Suspect]
     Active Substance: HYDROCHLOROTHIAZIDE\VALSARTAN
     Dosage: VALSARTAN 160 MG/HYDROCHLOROTHIAZIDE 12.5 MG
     Route: 065
     Dates: start: 20180521, end: 20180819
  2. GLUCOPHAGE [Concomitant]
     Active Substance: METFORMIN HYDROCHLORIDE
     Dosage: 2000 MILLIGRAM DAILY;
     Route: 048
  3. DIOVAN HCT [Suspect]
     Active Substance: HYDROCHLOROTHIAZIDE\VALSARTAN
     Dosage: VALSARTAN 160MG/HYDROCHLOROTHIAZIDE 12.5 MG
     Route: 065
     Dates: start: 20081010, end: 20081222
  4. LOSARTAN CAMBER [Suspect]
     Active Substance: LOSARTAN
     Indication: HYPERTENSION
     Route: 065
     Dates: start: 20190614, end: 20190713
  5. ADVIL [Concomitant]
     Active Substance: IBUPROFEN
     Indication: ARTHRALGIA
     Dosage: 200 MILLIGRAM DAILY;
     Dates: start: 2017, end: 2019
  6. VALSARTAN/HYDROCHLOROTHIAZIDE TEVA [Suspect]
     Active Substance: HYDROCHLOROTHIAZIDE\VALSARTAN
     Dosage: VALSARTAN 160 MG/HYDROCHLOROTHIAZIDE 12.5 MG
     Route: 065
     Dates: start: 20171215, end: 20180315
  7. HYDROCHLOROTHIAZIDE/LOSARTAN TORRENT [Suspect]
     Active Substance: HYDROCHLOROTHIAZIDE\VALSARTAN
     Indication: HYPERTENSION
     Dosage: LOSARTAN 100MG/HYDROCHLOROTHIAZIDE 12.5 MG
     Route: 065
     Dates: start: 20190202, end: 20190520
  8. CRESTOR [Concomitant]
     Active Substance: ROSUVASTATIN CALCIUM
     Dosage: 20 MILLIGRAM DAILY;
     Route: 048
  9. DIOVAN HCT [Suspect]
     Active Substance: HYDROCHLOROTHIAZIDE\VALSARTAN
     Indication: HYPERTENSION
     Dosage: VALSARTAN 160MG/HYDROCHLOROTHIAZIDE 12.5 MG
     Route: 065
     Dates: start: 20080618, end: 20080717
  10. HYDROCHLOROTHIAZIDE/VALSARTAN AUROBINDO [Suspect]
     Active Substance: HYDROCHLOROTHIAZIDE\VALSARTAN
     Indication: HYPERTENSION
     Dosage: VALSARTAN 160 MG/HYDROCHLOROTHIAZIDE 12.5 MG
     Route: 065
     Dates: start: 20181102, end: 20190130
  11. LOSARTAN AUROBINDO [Suspect]
     Active Substance: LOSARTAN
     Indication: HYPERTENSION
     Route: 065
     Dates: start: 20190723, end: 20200206
  12. METFORMIN [Concomitant]
     Active Substance: METFORMIN HYDROCHLORIDE
     Indication: DIABETES MELLITUS
     Dosage: 1000 MG
     Dates: start: 199706, end: 2019
  13. VALSARTAN/HYDROCHLOROTHIAZIDE TEVA [Suspect]
     Active Substance: HYDROCHLOROTHIAZIDE\VALSARTAN
     Indication: HYPERTENSION
     Dosage: VALSARTAN 160 MG/HYDROCHLOROTHIAZIDE 12.5 MG
     Route: 065
     Dates: start: 20140104, end: 20171018

REACTIONS (2)
  - Metastases to liver [Not Recovered/Not Resolved]
  - Rectal cancer metastatic [Not Recovered/Not Resolved]
